FAERS Safety Report 6727981-5 (Version None)
Quarter: 2010Q2

REPORT INFORMATION
  Report Type: 
  Country: None (occurrence: None)
  Receive Date: 20100517
  Receipt Date: 20100506
  Transmission Date: 20101027
  Serious: Yes (Hospitalization)
  Sender: FDA-Public Use
  Company Number: ES-PFIZER INC-2010056995

PATIENT
  Age: 73 Year
  Sex: Female

DRUGS (4)
  1. ALDACTONE [Suspect]
     Indication: ASCITES
     Dosage: 25 MG, 4X/DAY
     Route: 048
     Dates: start: 20071001
  2. METFORMIN [Interacting]
     Indication: TYPE 2 DIABETES MELLITUS
     Dosage: 2.55 G
     Route: 048
  3. FUROSEMIDE [Interacting]
     Indication: ASCITES
     Dosage: 40 MG, DAILY
     Route: 048
     Dates: end: 20090618
  4. FUROSEMIDE [Interacting]
     Dosage: 80 MG, DAILY
     Route: 048
     Dates: start: 20090619, end: 20090701

REACTIONS (3)
  - DRUG INTERACTION [None]
  - HEPATIC ENCEPHALOPATHY [None]
  - RENAL FAILURE ACUTE [None]
